FAERS Safety Report 19012507 (Version 7)
Quarter: 2021Q2

REPORT INFORMATION
  Report Type: Report from Study
  Country: AU (occurrence: AU)
  Receive Date: 20210315
  Receipt Date: 20210506
  Transmission Date: 20210717
  Serious: Yes (Life-Threatening, Hospitalization)
  Sender: FDA-Public Use
  Company Number: AU-EISAI MEDICAL RESEARCH-EC-2021-089609

PATIENT
  Age: 63 Year
  Sex: Female
  Weight: 77.1 kg

DRUGS (10)
  1. LENVATINIB [Suspect]
     Active Substance: LENVATINIB
     Indication: ENDOMETRIAL CANCER
     Route: 048
     Dates: start: 20210226, end: 20210311
  2. PEMBROLIZUMAB. [Suspect]
     Active Substance: PEMBROLIZUMAB
     Route: 041
     Dates: start: 20210409
  3. ADDOS XR [Concomitant]
     Active Substance: NIFEDIPINE
     Dates: start: 200501, end: 20210311
  4. PEMBROLIZUMAB. [Suspect]
     Active Substance: PEMBROLIZUMAB
     Indication: ENDOMETRIAL CANCER
     Route: 041
     Dates: start: 20210226, end: 20210226
  5. JANUMET XR [Concomitant]
     Active Substance: METFORMIN HYDROCHLORIDE\SITAGLIPTIN PHOSPHATE
     Dates: start: 200501, end: 20210311
  6. DAPAGLIFLOZIN. [Concomitant]
     Active Substance: DAPAGLIFLOZIN
     Dates: start: 202005, end: 20210311
  7. PANADOL [Concomitant]
     Active Substance: ACETAMINOPHEN
     Dates: start: 202101
  8. AVSARTAN HCT [Concomitant]
     Dates: start: 200501, end: 20210311
  9. ASPIRIN. [Concomitant]
     Active Substance: ASPIRIN
     Dates: start: 201901, end: 20210311
  10. EZETIMIBE (+) SIMVASTATIN [Concomitant]
     Active Substance: EZETIMIBE\SIMVASTATIN
     Dates: start: 200501

REACTIONS (2)
  - Hypertensive crisis [Recovered/Resolved]
  - Status epilepticus [Recovered/Resolved]

NARRATIVE: CASE EVENT DATE: 20210311
